FAERS Safety Report 6634101-4 (Version None)
Quarter: 2010Q1

REPORT INFORMATION
  Report Type: 
  Country: None (occurrence: None)
  Receive Date: 20100315
  Receipt Date: 20100309
  Transmission Date: 20100710
  Serious: Yes (Life-Threatening, Hospitalization)
  Sender: FDA-Public Use
  Company Number: US-CELGENEUS-163-21880-10030957

PATIENT
  Sex: Male
  Weight: 71.3 kg

DRUGS (2)
  1. REVLIMID [Suspect]
     Route: 048
     Dates: start: 20100223, end: 20100301
  2. REVLIMID [Suspect]
     Route: 048
     Dates: start: 20100302, end: 20100308

REACTIONS (2)
  - FEBRILE NEUTROPENIA [None]
  - HYPOTENSION [None]
